FAERS Safety Report 26101201 (Version 2)
Quarter: 2025Q4

REPORT INFORMATION
  Report Type: Spontaneous
  Country: US (occurrence: US)
  Receive Date: 20251128
  Receipt Date: 20251217
  Transmission Date: 20260118
  Serious: Yes (Life-Threatening, Hospitalization)
  Sender: MERCK SHARP & DOHME LLC
  Company Number: US-009507513-2353506

PATIENT
  Age: 46 Year
  Sex: Female
  Weight: 106.59 kg

DRUGS (6)
  1. KEYTRUDA [Suspect]
     Active Substance: PEMBROLIZUMAB
     Indication: Triple negative breast cancer
     Dosage: 200 MG
     Route: 042
     Dates: start: 20250514
  2. KEYTRUDA [Suspect]
     Active Substance: PEMBROLIZUMAB
     Indication: Triple negative breast cancer
     Dosage: 200 MG, THIS WAS THE SIXTH AND FINAL CYCLE
     Route: 042
     Dates: start: 20250916
  3. CARBOPLATIN [Suspect]
     Active Substance: CARBOPLATIN
     Indication: Triple negative breast cancer
     Dosage: CONCOMITANTLY ADMINISTERED WITH PEMBROLIZUMAB (KEYTRUDA) FOR THE FIRST 4 CYCLES
  4. TAXOL [Suspect]
     Active Substance: PACLITAXEL
     Indication: Triple negative breast cancer
     Dosage: ADMINISTERED WITH PEMBROLIZUMAB (KEYTRUDA) FOR THE FIRST 4 CYCLES
  5. ADRIAMYCIN [Suspect]
     Active Substance: DOXORUBICIN HYDROCHLORIDE
     Indication: Triple negative breast cancer
     Dosage: CONCOMITANTLY ADMINISTERED WITH PEMBROLIZUMAB (KEYTRUDA) FOR THE LAST 2 CYCLES
  6. CYTOXAN [Suspect]
     Active Substance: CYCLOPHOSPHAMIDE
     Indication: Triple negative breast cancer
     Dosage: CONCOMITANTLY ADMINISTERED WITH PEMBROLIZUMAB (KEYTRUDA) FOR THE LAST 2 CYCLES

REACTIONS (3)
  - Adrenal insufficiency [Unknown]
  - Hyperparathyroidism [Unknown]
  - Hyperuricaemia [Unknown]

NARRATIVE: CASE EVENT DATE: 20250101
